FAERS Safety Report 6261058-0 (Version None)
Quarter: 2009Q3

REPORT INFORMATION
  Report Type: 
  Country: None (occurrence: None)
  Receive Date: 20090709
  Receipt Date: 20071218
  Transmission Date: 20100115
  Serious: Yes (Hospitalization)
  Sender: FDA-Public Use
  Company Number: US-ASTRAZENECA-2006UW22634

PATIENT
  Age: 57 Year
  Sex: Female
  Weight: 72.6 kg

DRUGS (19)
  1. SEROQUEL [Suspect]
     Indication: SLEEP DISORDER
     Dosage: 100MG-200MG
     Route: 048
     Dates: start: 20010809
  2. SEROQUEL [Suspect]
     Indication: PANIC ATTACK
     Dosage: 100MG-200MG
     Route: 048
     Dates: start: 20010809
  3. SEROQUEL [Suspect]
     Indication: POST-TRAUMATIC STRESS DISORDER
     Dosage: 100MG-200MG
     Route: 048
     Dates: start: 20010809
  4. SEROQUEL [Suspect]
     Indication: AFFECTIVE DISORDER
     Dosage: 100MG-200MG
     Route: 048
     Dates: start: 20010809
  5. SEROQUEL [Suspect]
     Dosage: 100MG-200MG
     Route: 048
     Dates: start: 20010809
  6. SEROQUEL [Suspect]
     Route: 048
     Dates: start: 20020101
  7. SEROQUEL [Suspect]
     Route: 048
     Dates: start: 20020101
  8. SEROQUEL [Suspect]
     Route: 048
     Dates: start: 20020101
  9. SEROQUEL [Suspect]
     Route: 048
     Dates: start: 20020101
  10. SEROQUEL [Suspect]
     Route: 048
     Dates: start: 20020101
  11. PAXIL [Concomitant]
  12. ZOCOR [Concomitant]
  13. PREVACID [Concomitant]
     Indication: GASTROOESOPHAGEAL REFLUX DISEASE
  14. AMBIEN [Concomitant]
     Dates: start: 20060307, end: 20060606
  15. ESTRADIOL [Concomitant]
  16. CIMETIDINE [Concomitant]
  17. ZYRTEC [Concomitant]
  18. GLIPIZIDE [Concomitant]
     Dosage: STRENGTH 5 MG - 10 MG
  19. NEXIUM [Concomitant]
     Indication: GASTROOESOPHAGEAL REFLUX DISEASE
     Route: 048
     Dates: start: 20040713, end: 20050912

REACTIONS (3)
  - DIABETES MELLITUS [None]
  - HYPERTENSION [None]
  - HYSTERECTOMY [None]
